FAERS Safety Report 5235533-1 (Version None)
Quarter: 2007Q1

REPORT INFORMATION
  Report Type: 
  Country: None (occurrence: None)
  Receive Date: 20070208
  Receipt Date: 20070208
  Transmission Date: 20070707
  Serious: Yes (Other)
  Sender: FDA-Public Use
  Company Number: None

PATIENT
  Age: 74 Year
  Sex: Male
  Weight: 55.7924 kg

DRUGS (1)
  1. CARBOPLATIN [Suspect]
     Indication: SMALL CELL LUNG CANCER METASTATIC
     Dosage: 290 MG  OVER 1/2 HOUR  IV
     Route: 042
     Dates: start: 20061023

REACTIONS (2)
  - INFUSION RELATED REACTION [None]
  - PARAESTHESIA [None]
